FAERS Safety Report 18001054 (Version 1)
Quarter: 2020Q3

REPORT INFORMATION
  Report Type: Spontaneous
  Country: US (occurrence: US)
  Receive Date: 20200709
  Receipt Date: 20200709
  Transmission Date: 20201103
  Serious: Yes (Death, Other)
  Sender: FDA-Public Use
  Company Number: US-ENDO PHARMACEUTICALS INC-2020-004339

PATIENT
  Age: 51 Year

DRUGS (5)
  1. ETODOLAC. [Suspect]
     Active Substance: ETODOLAC
     Indication: PRODUCT USED FOR UNKNOWN INDICATION
     Dosage: UNK UNKNOWN, UNKNOWN
     Route: 048
  2. LIPOZENE [Suspect]
     Active Substance: KONJAC MANNAN
     Indication: PRODUCT USED FOR UNKNOWN INDICATION
     Dosage: UNK UNKNOWN, UNKNOWN
     Route: 048
  3. SEROQUEL [Suspect]
     Active Substance: QUETIAPINE FUMARATE
     Indication: PRODUCT USED FOR UNKNOWN INDICATION
     Dosage: UNK UNKNOWN, UNKNOWN
     Route: 048
  4. TRAMADOL HYDROCHLORIDE. [Suspect]
     Active Substance: TRAMADOL HYDROCHLORIDE
     Indication: PRODUCT USED FOR UNKNOWN INDICATION
     Dosage: UNK UNKNOWN, UNKNOWN
     Route: 048
  5. MORPHINE SULFATE. [Suspect]
     Active Substance: MORPHINE SULFATE
     Indication: PRODUCT USED FOR UNKNOWN INDICATION
     Dosage: UNK UNKNOWN, UNKNOWN
     Route: 048

REACTIONS (15)
  - Pulmonary oedema [Unknown]
  - Death [Fatal]
  - Tachycardia [Unknown]
  - Alanine aminotransferase abnormal [None]
  - Coma [Unknown]
  - Prothrombin time prolonged [Unknown]
  - Hyperthermia [Unknown]
  - Wheezing [Unknown]
  - Hyperglycaemia [Unknown]
  - Pyrexia [Unknown]
  - Electrolyte imbalance [Unknown]
  - Cardiac arrest [Unknown]
  - Rhabdomyolysis [Unknown]
  - Aspartate aminotransferase abnormal [Unknown]
  - Acidosis [Unknown]

NARRATIVE: CASE EVENT DATE: 201110
